FAERS Safety Report 18027220 (Version 1)
Quarter: 2020Q3

REPORT INFORMATION
  Report Type: Spontaneous
  Country: US (occurrence: US)
  Receive Date: 20200715
  Receipt Date: 20200715
  Transmission Date: 20201103
  Serious: No
  Sender: FDA-Public Use
  Company Number: US-SHIRE-US202022675

PATIENT
  Age: 64 Year
  Sex: Male

DRUGS (1)
  1. GATTEX [Suspect]
     Active Substance: TEDUGLUTIDE\WATER
     Indication: PRODUCT USED FOR UNKNOWN INDICATION
     Dosage: 0.32 UNK
     Route: 058
     Dates: start: 20191022, end: 20200622

REACTIONS (2)
  - Night sweats [Unknown]
  - Gastric dilatation [Unknown]

NARRATIVE: CASE EVENT DATE: 20200622
